FAERS Safety Report 10522961 (Version 3)
Quarter: 2014Q4

REPORT INFORMATION
  Report Type: Spontaneous
  Country: GB (occurrence: None)
  Receive Date: 20141010
  Receipt Date: 20141120
  Transmission Date: 20150528
  Serious: Yes (Other)
  Sender: FDA-Public Use
  Company Number: 7325789

PATIENT
  Age: 74 Year
  Sex: Female

DRUGS (5)
  1. LEVOTHYROXINE [Suspect]
     Active Substance: LEVOTHYROXINE
     Indication: HYPOTHYROIDISM
     Dates: start: 20130708
  2. LEVOTHYROXINE SODIUM. [Suspect]
     Active Substance: LEVOTHYROXINE SODIUM
     Indication: HYPOTHYROIDISM
  3. ANTACID [Concomitant]
     Active Substance: ALUMINUM HYDROXIDE\CALCIUM CARBONATE\DIMETHICONE\MAGNESIUM HYDROXIDE
  4. BISOPROLOL FUMARATE. [Suspect]
     Active Substance: BISOPROLOL FUMARATE
     Indication: PALPITATIONS
  5. ZOTON [Concomitant]
     Active Substance: LANSOPRAZOLE

REACTIONS (13)
  - Myalgia [None]
  - Dry skin [None]
  - Dysphonia [None]
  - Suicidal ideation [None]
  - Irritable bowel syndrome [None]
  - Peripheral coldness [None]
  - Alopecia [None]
  - Tinnitus [None]
  - Palpitations [None]
  - Weight decreased [None]
  - Diarrhoea [None]
  - Feeling cold [None]
  - Depression [None]

NARRATIVE: CASE EVENT DATE: 20130713
